FAERS Safety Report 12495325 (Version 1)
Quarter: 2016Q2

REPORT INFORMATION
  Report Type: Spontaneous
  Country: US (occurrence: None)
  Receive Date: 20160623
  Receipt Date: 20160623
  Transmission Date: 20160815
  Serious: No
  Sender: FDA-Public Use
  Company Number: None

PATIENT
  Age: 64 Year
  Sex: Female

DRUGS (26)
  1. IBUPROFEN. [Concomitant]
     Active Substance: IBUPROFEN
  2. BD PEN NEEDL MIS [Concomitant]
  3. CITALOPRAM [Concomitant]
     Active Substance: CITALOPRAM HYDROBROMIDE
  4. FLONASE [Concomitant]
     Active Substance: FLUTICASONE PROPIONATE
  5. DOCUSATE SOD [Concomitant]
  6. BAYER CONTOR TES NEXT [Concomitant]
  7. IBRANCE [Suspect]
     Active Substance: PALBOCICLIB
     Indication: BREAST CANCER
     Route: 048
     Dates: start: 201603
  8. LORAZEPAM. [Concomitant]
     Active Substance: LORAZEPAM
  9. LETROZOLE. [Concomitant]
     Active Substance: LETROZOLE
  10. MULTI-VITAMIN [Concomitant]
     Active Substance: .ALPHA.-TOCOPHEROL ACETATE, DL-\ASCORBIC ACID\CYANOCOBALAMIN\FLUORIDE ION\FOLIC ACID\NIACIN\PYRIDOXINE\RIBOFLAVIN\THIAMINE\VITAMIN A\VITAMIN D
  11. MAGNESIUM [Concomitant]
     Active Substance: MAGNESIUM
  12. ALREX [Concomitant]
     Active Substance: LOTEPREDNOL ETABONATE
  13. BAYER MICRLT MIS LANCETS [Concomitant]
  14. HYDROCHLOROT [Concomitant]
     Active Substance: HYDROCHLOROTHIAZIDE
  15. CALCIUM CARB SUS [Concomitant]
  16. DILTIAZEM [Concomitant]
     Active Substance: DILTIAZEM
  17. TEMAZEPAM. [Concomitant]
     Active Substance: TEMAZEPAM
  18. SUPER B- CAP COMPLEX [Concomitant]
  19. LOSARTAN POT [Concomitant]
     Active Substance: LOSARTAN POTASSIUM
  20. VITAMIN D3 [Concomitant]
     Active Substance: CHOLECALCIFEROL
  21. VITAMIN E [Concomitant]
     Active Substance: .ALPHA.-TOCOPHEROL
  22. VITAMIN C [Concomitant]
     Active Substance: ASCORBIC ACID
  23. MELATONIN [Concomitant]
     Active Substance: MELATONIN
  24. DULCOLAX NOS [Concomitant]
     Active Substance: BISACODYL OR DOCUSATE SODIUM
  25. LANTUS SOLOSTAR [Concomitant]
     Active Substance: INSULIN GLARGINE
  26. FISH OIL [Concomitant]
     Active Substance: FISH OIL

REACTIONS (1)
  - Nausea [None]

NARRATIVE: CASE EVENT DATE: 201606
